FAERS Safety Report 9401336 (Version 1)
Quarter: 2013Q3

REPORT INFORMATION
  Report Type: Spontaneous
  Country: US (occurrence: US)
  Receive Date: 20130715
  Receipt Date: 20130715
  Transmission Date: 20140515
  Serious: No
  Sender: FDA-Public Use
  Company Number: US-US-EMD SERONO, INC.-7087585

PATIENT
  Sex: Male

DRUGS (2)
  1. REBIF [Suspect]
     Indication: MULTIPLE SCLEROSIS
     Route: 058
     Dates: start: 20100609, end: 2011
  2. REBIF [Suspect]
     Route: 058

REACTIONS (2)
  - Unevaluable event [Recovering/Resolving]
  - Photosensitivity reaction [Not Recovered/Not Resolved]
